FAERS Safety Report 16137649 (Version 2)
Quarter: 2019Q2

REPORT INFORMATION
  Report Type: Spontaneous
  Country: US (occurrence: US)
  Receive Date: 20190401
  Receipt Date: 20190524
  Transmission Date: 20190711
  Serious: Yes (Other)
  Sender: FDA-Public Use
  Company Number: US-GLAXOSMITHKLINE-US2019055493

PATIENT
  Age: 34 Year
  Sex: Female

DRUGS (2)
  1. FLONASE ALLERGY RELIEF [Suspect]
     Active Substance: FLUTICASONE PROPIONATE
     Indication: HYPERSENSITIVITY
     Dosage: UNK
     Route: 045
     Dates: start: 20190326, end: 20190326
  2. FLONASE SENSIMIST ALLERGY RELIEF [Suspect]
     Active Substance: FLUTICASONE FUROATE
     Indication: HYPERSENSITIVITY
     Dosage: UNK
     Route: 045
     Dates: start: 20190326, end: 20190326

REACTIONS (6)
  - Drug ineffective [Unknown]
  - Syncope [Unknown]
  - Nasal discomfort [Unknown]
  - Nausea [Unknown]
  - Dizziness [Unknown]
  - Sinus headache [Unknown]

NARRATIVE: CASE EVENT DATE: 20190326
